FAERS Safety Report 13289710 (Version 1)
Quarter: 2017Q1

REPORT INFORMATION
  Report Type: Spontaneous
  Country: FR (occurrence: FR)
  Receive Date: 20170302
  Receipt Date: 20170302
  Transmission Date: 20170428
  Serious: Yes (Hospitalization)
  Sender: FDA-Public Use
  Company Number: FR-ELI_LILLY_AND_COMPANY-FR201702011415

PATIENT
  Age: 77 Year
  Sex: Female

DRUGS (3)
  1. ERBITUX [Suspect]
     Active Substance: CETUXIMAB
     Indication: COLON CANCER METASTATIC
     Dosage: UNK UNK, UNKNOWN
     Route: 042
     Dates: start: 20170118, end: 20170118
  2. FLUOROURACILE [Suspect]
     Active Substance: FLUOROURACIL
     Dosage: UNK UNK, UNKNOWN
     Route: 042
     Dates: start: 20170118, end: 20170118
  3. FLUOROURACILE [Suspect]
     Active Substance: FLUOROURACIL
     Indication: COLON CANCER METASTATIC
     Dosage: UNK UNK, UNKNOWN
     Route: 042
     Dates: start: 201510, end: 201604

REACTIONS (3)
  - Lung disorder [Recovering/Resolving]
  - Cardiac failure [Recovering/Resolving]
  - Troponin increased [Unknown]

NARRATIVE: CASE EVENT DATE: 20170118
